FAERS Safety Report 6694393-2 (Version None)
Quarter: 2010Q2

REPORT INFORMATION
  Report Type: 
  Country: None (occurrence: None)
  Receive Date: 20100423
  Receipt Date: 20100412
  Transmission Date: 20101027
  Serious: Yes (Other)
  Sender: FDA-Public Use
  Company Number: US-MYLANLABS-2010S1004364

PATIENT
  Age: 58 Year
  Sex: Female
  Weight: 85 kg

DRUGS (14)
  1. AMNESTEEM [Suspect]
     Indication: ACNE CYSTIC
     Route: 048
     Dates: end: 20100311
  2. CLARAVIS [Suspect]
     Indication: ACNE CYSTIC
     Route: 048
     Dates: start: 20091002
  3. SPIRONOLACTONE [Concomitant]
  4. CALCIUM [Concomitant]
  5. ASPIRIN [Concomitant]
  6. METOPROLOL TARTRATE [Concomitant]
  7. CYMBALTA [Concomitant]
  8. LEVOXYL [Concomitant]
  9. SEROQUEL [Concomitant]
  10. COSAMINE [Concomitant]
  11. ADDERALL 30 [Concomitant]
  12. TRICOR [Concomitant]
  13. BUSPAR [Concomitant]
  14. NEXIUM [Concomitant]

REACTIONS (2)
  - DEPRESSION [None]
  - SUICIDAL IDEATION [None]
